FAERS Safety Report 8389007 (Version 6)
Quarter: 2013Q1

REPORT INFORMATION
  Report Type: Report from Study
  Country: CA (occurrence: CA)
  Receive Date: 20120203
  Receipt Date: 20130311
  Transmission Date: 20140127
  Serious: Yes (Hospitalization)
  Sender: FDA-Public Use
  Company Number: CA-CELGENEUS-028-C5013-12012312

PATIENT
  Age: 70 Year
  Sex: Male
  Weight: 87.7 kg

DRUGS (27)
  1. CC-5013 [Suspect]
     Indication: CHRONIC LYMPHOCYTIC LEUKAEMIA
     Route: 048
     Dates: start: 20111128
  2. CC-5013 [Suspect]
     Dosage: 10 MILLIGRAM
     Route: 048
     Dates: start: 20120109, end: 20120120
  3. CC-5013 [Suspect]
     Dosage: 5 MILLIGRAM
     Route: 048
     Dates: start: 20120125, end: 20120129
  4. GCSF [Concomitant]
     Indication: NEUTROPENIA
     Dosage: 300 MICROGRAM
     Route: 058
     Dates: start: 20111213, end: 20111215
  5. TYLENOL [Concomitant]
     Indication: FEBRILE NEUTROPENIA
     Dosage: 1 GRAM
     Route: 048
     Dates: start: 20111215, end: 20111215
  6. ALLOPURINOL [Concomitant]
     Indication: PROPHYLAXIS
     Dosage: 300 MILLIGRAM
     Route: 048
     Dates: start: 20111125, end: 20120120
  7. ALLOPURINOL [Concomitant]
     Dosage: 200 MILLIGRAM
     Route: 048
     Dates: start: 20120121, end: 20120121
  8. ALLOPURINOL [Concomitant]
     Dosage: 300 MILLIGRAM
     Route: 048
     Dates: start: 20120121, end: 20120204
  9. PAMIDRONATE [Concomitant]
     Indication: HYPERCALCAEMIA
     Dosage: 90 MILLIGRAM
     Route: 041
     Dates: start: 20111202, end: 20111202
  10. PAMIDRONATE [Concomitant]
     Dosage: 90 MILLIGRAM
     Route: 041
     Dates: start: 20120121, end: 20120121
  11. PAMIDRONATE [Concomitant]
     Dosage: 90 MILLIGRAM
     Route: 041
     Dates: start: 20120121, end: 20120121
  12. CALCITONIN [Concomitant]
     Indication: HYPERCALCAEMIA
     Dosage: 360 UNITS
     Route: 058
     Dates: start: 20120122, end: 20120122
  13. TYLENOL ARTHRITIS [Concomitant]
     Indication: ARTHRITIS
     Dosage: 1300 MILLIGRAM
     Route: 048
     Dates: start: 2005
  14. TYLENOL ARTHRITIS [Concomitant]
     Dosage: 500 MILLIGRAM
     Route: 048
     Dates: start: 20111129
  15. TAZOCIN [Concomitant]
     Indication: FEBRILE NEUTROPENIA
     Route: 041
     Dates: start: 20111215, end: 20111218
  16. GLUCOSAMINE CHONDROITIN [Concomitant]
     Indication: ARTHRITIS
     Route: 048
     Dates: start: 2005
  17. VITAMIN D [Concomitant]
     Indication: ROUTINE HEALTH MAINTENANCE
     Route: 048
     Dates: start: 2005
  18. MAGNESIUM [Concomitant]
     Indication: ROUTINE HEALTH MAINTENANCE
     Dosage: 250 MILLIGRAM
     Route: 048
     Dates: start: 2005, end: 201101
  19. B100 COMPLEX [Concomitant]
     Indication: ROUTINE HEALTH MAINTENANCE
     Dosage: 1 TABLET
     Route: 048
     Dates: start: 2005
  20. CENTRUM SELECT 50 [Concomitant]
     Indication: ROUTINE HEALTH MAINTENANCE
     Dosage: 1-2 TABLET(S)
     Route: 048
     Dates: start: 2005
  21. FISH OIL [Concomitant]
     Indication: ROUTINE HEALTH MAINTENANCE
     Dosage: 1000 MILLIGRAM
     Route: 048
     Dates: start: 2005
  22. ASA [Concomitant]
     Indication: THROMBOSIS PROPHYLAXIS
     Dosage: 81 MILLIGRAM
     Route: 048
     Dates: start: 20111129, end: 20111206
  23. ASA [Concomitant]
     Dosage: 81 MILLIGRAM
     Route: 048
     Dates: start: 20111207, end: 20120204
  24. NORMAL SALINE [Concomitant]
     Indication: FLUID REPLACEMENT
     Dosage: 75ML/HR
     Route: 041
     Dates: start: 20111215, end: 20111218
  25. NORMAL SALINE [Concomitant]
     Dosage: 100ML/HR
     Route: 041
     Dates: start: 20120121, end: 20120121
  26. NORMAL SALINE [Concomitant]
     Dosage: 1000ML/HR
     Route: 041
     Dates: start: 20120121, end: 20120121
  27. MACROBID [Concomitant]
     Indication: URINARY TRACT INFECTION
     Dosage: 200 MILLIGRAM
     Route: 048
     Dates: start: 20111215, end: 20111229

REACTIONS (1)
  - Hypercalcaemia [Recovered/Resolved]
